FAERS Safety Report 6032084-1 (Version None)
Quarter: 2008Q4

REPORT INFORMATION
  Report Type: 
  Country: None (occurrence: None)
  Receive Date: 20081222
  Receipt Date: 20081112
  Transmission Date: 20090506
  Serious: No
  Sender: FDA-Public Use
  Company Number: US-WYE-H06822608

PATIENT
  Age: 58 Year
  Sex: Male
  Weight: 96.25 kg

DRUGS (4)
  1. PRISTIQ [Suspect]
     Indication: BIPOLAR DISORDER
     Dosage: 50 MG 1X PER 1 DAY, ORAL
     Route: 048
     Dates: start: 20081106
  2. PRISTIQ [Suspect]
     Indication: DEPRESSION
     Dosage: 50 MG 1X PER 1 DAY, ORAL
     Route: 048
     Dates: start: 20081106
  3. LITHIIUM (LITHIUM) [Concomitant]
  4. ACIPHEX [Concomitant]

REACTIONS (1)
  - MEMORY IMPAIRMENT [None]
